FAERS Safety Report 9334691 (Version 2)
Quarter: 2013Q2

REPORT INFORMATION
  Report Type: Spontaneous
  Country: JO (occurrence: JO)
  Receive Date: 20130606
  Receipt Date: 20130611
  Transmission Date: 20140414
  Serious: Yes (Death, Hospitalization)
  Sender: FDA-Public Use
  Company Number: PHHY2013JO057454

PATIENT
  Age: 68 Year
  Sex: Female

DRUGS (7)
  1. ACLASTA [Suspect]
     Indication: OSTEOPOROSIS
     Dosage: 5 MG, UNK
     Route: 042
     Dates: start: 20130530
  2. CARBITAL [Concomitant]
     Dosage: UNK UKN, UNK
  3. METFORMIN [Concomitant]
     Dosage: UNK UKN, UNK
  4. NEXIUM [Concomitant]
     Dosage: UNK UKN, UNK
  5. LYRICA [Concomitant]
     Dosage: UNK UKN, UNK
  6. MYDOCALM [Concomitant]
     Dosage: UNK UKN, UNK
  7. PANADOL [Concomitant]
     Dosage: UNK UKN, UNK

REACTIONS (1)
  - Cardiac arrest [Fatal]
